FAERS Safety Report 22004682 (Version 1)
Quarter: 2023Q1

REPORT INFORMATION
  Report Type: Other
  Country: US (occurrence: None)
  Receive Date: 20230217
  Receipt Date: 20230217
  Transmission Date: 20230418
  Serious: Yes (Hospitalization)
  Sender: FDA-Public Use
  Company Number: US-ROCHE-3280629

PATIENT
  Age: 44 Year
  Sex: Male
  Weight: 87.622 kg

DRUGS (7)
  1. OCREVUS [Suspect]
     Active Substance: OCRELIZUMAB
     Indication: Relapsing-remitting multiple sclerosis
     Dosage: DATE OF TREATMENT- 02/FEB/2018, 06/JUL/2018, 01/JUL/2022, 01/JUL/2022, 01/JAN/2022, 07/JUL/2021, 14/
     Route: 042
     Dates: start: 2018
  2. OCREVUS [Suspect]
     Active Substance: OCRELIZUMAB
     Dosage: LAST DATE OF TREATMENT- 14/JAN/2021
     Route: 042
  3. OMEGA 3 [Concomitant]
     Active Substance: CAPSAICIN
     Indication: Relapsing-remitting multiple sclerosis
     Route: 048
     Dates: start: 2007
  4. VITAMIN D3 [Concomitant]
     Active Substance: CHOLECALCIFEROL
     Route: 048
     Dates: start: 2017
  5. VITAMIN B12 [Concomitant]
     Active Substance: CYANOCOBALAMIN
     Indication: Relapsing-remitting multiple sclerosis
     Route: 048
     Dates: start: 2007
  6. LEVOTHYROXINE [Concomitant]
     Active Substance: LEVOTHYROXINE
     Route: 048
     Dates: start: 2011
  7. KLONOPIN [Concomitant]
     Active Substance: CLONAZEPAM
     Indication: Anxiety
     Dosage: 1 TABLET ONCE DAILY AS NEEDED ;ONGOING: YES
     Route: 048
     Dates: start: 2007

REACTIONS (5)
  - COVID-19 [Unknown]
  - Musculoskeletal stiffness [Not Recovered/Not Resolved]
  - Muscular weakness [Not Recovered/Not Resolved]
  - Joint stiffness [Not Recovered/Not Resolved]
  - Hypertension [Not Recovered/Not Resolved]

NARRATIVE: CASE EVENT DATE: 20200101
